FAERS Safety Report 6970972-X (Version None)
Quarter: 2010Q3

REPORT INFORMATION
  Report Type: 
  Country: None (occurrence: None)
  Receive Date: 20100908
  Receipt Date: 20100827
  Transmission Date: 20110219
  Serious: Yes (Hospitalization, Other)
  Sender: FDA-Public Use
  Company Number: US-PFIZER INC-2010064822

PATIENT
  Sex: Female

DRUGS (7)
  1. CHANTIX [Suspect]
     Indication: SMOKING CESSATION THERAPY
     Dosage: UNK
     Dates: start: 20061201, end: 20070301
  2. CHANTIX [Suspect]
     Dosage: UNK
     Dates: start: 20080308, end: 20080601
  3. CHANTIX [Suspect]
     Dosage: UNK
     Dates: start: 20090601, end: 20091101
  4. XANAX [Concomitant]
     Indication: ANXIETY
     Dosage: UNK
     Dates: start: 20030101
  5. CLONAZEPAM [Concomitant]
     Indication: ANXIETY
     Dosage: UNK
     Dates: start: 20060101, end: 20090101
  6. FIORICET [Concomitant]
     Indication: PAIN MANAGEMENT
     Dosage: UNK
     Dates: start: 20030101
  7. IBANDRONATE SODIUM [Concomitant]
     Indication: OSTEOPOROSIS
     Dosage: UNK
     Dates: start: 20070101

REACTIONS (8)
  - ANXIETY [None]
  - DECUBITUS ULCER [None]
  - DEPRESSION [None]
  - INTENTIONAL OVERDOSE [None]
  - LIMB INJURY [None]
  - NERVE INJURY [None]
  - PAIN IN EXTREMITY [None]
  - SUICIDE ATTEMPT [None]
